FAERS Safety Report 8906670 (Version 1)
Quarter: 2012Q4

REPORT INFORMATION
  Report Type: 
  Country: US (occurrence: US)
  Receive Date: 20121113
  Receipt Date: 20121113
  Transmission Date: 20130627
  Serious: No
  Sender: FDA-Public Use
  Company Number: US-AMGEN-USASP2012010872

PATIENT
  Age: 59 Year
  Sex: Male

DRUGS (1)
  1. ENBREL [Suspect]
     Indication: PSORIATIC ARTHROPATHY
     Dosage: 25 mg, Every 3-4 Weeks
     Route: 058
     Dates: start: 2004

REACTIONS (4)
  - Arthralgia [Not Recovered/Not Resolved]
  - Pain in extremity [Not Recovered/Not Resolved]
  - Intentional drug misuse [Not Recovered/Not Resolved]
  - Injection site pain [Not Recovered/Not Resolved]
